APPROVED DRUG PRODUCT: VASOPRESSIN IN DEXTROSE 5%
Active Ingredient: VASOPRESSIN
Strength: 40UNITS/100ML (0.4UNITS/ML)
Dosage Form/Route: SOLUTION;INTRAVENOUS
Application: A216963 | Product #002 | TE Code: AP
Applicant: GLAND PHARMA LTD
Approved: Aug 22, 2025 | RLD: No | RS: No | Type: RX